FAERS Safety Report 9313630 (Version 1)
Quarter: 2013Q2

REPORT INFORMATION
  Report Type: Spontaneous
  Country: TR (occurrence: TR)
  Receive Date: 20130528
  Receipt Date: 20130528
  Transmission Date: 20140414
  Serious: Yes (Hospitalization)
  Sender: FDA-Public Use
  Company Number: TR-ELI_LILLY_AND_COMPANY-TR201107006217

PATIENT
  Age: 7 Year
  Sex: Female

DRUGS (2)
  1. PENICILLIN V POTASSIUM [Suspect]
     Indication: RASH ERYTHEMATOUS
     Dosage: UNK, UNKNOWN
  2. CEFTRIAXONE [Concomitant]
     Dosage: UNK, UNKNOWN

REACTIONS (1)
  - Drug reaction with eosinophilia and systemic symptoms [Recovering/Resolving]
